FAERS Safety Report 15706126 (Version 2)
Quarter: 2018Q4

REPORT INFORMATION
  Report Type: Report from Study
  Country: US (occurrence: US)
  Receive Date: 20181210
  Receipt Date: 20181228
  Transmission Date: 20190205
  Serious: Yes (Other)
  Sender: FDA-Public Use
  Company Number: US-SHIRE-US201847064

PATIENT
  Age: 46 Year
  Sex: Female

DRUGS (2)
  1. NATPARA (PARATHYROID HORMONE) [Suspect]
     Active Substance: PARATHYROID HORMONE
     Dosage: 100 ?G, 1X/DAY:QD
     Route: 058
     Dates: start: 20180917
  2. NATPARA (PARATHYROID HORMONE) [Suspect]
     Active Substance: PARATHYROID HORMONE
     Indication: POST PROCEDURAL HYPOPARATHYROIDISM
     Dosage: 100 ?G, 1X/DAY:QD
     Route: 058
     Dates: start: 20180917

REACTIONS (5)
  - Blepharospasm [Unknown]
  - Inappropriate schedule of product administration [Unknown]
  - Nervousness [Unknown]
  - Muscle twitching [Unknown]
  - Paraesthesia [Unknown]

NARRATIVE: CASE EVENT DATE: 20181202
